FAERS Safety Report 5486093-1 (Version None)
Quarter: 2007Q4

REPORT INFORMATION
  Report Type: 
  Country: None (occurrence: None)
  Receive Date: 20071015
  Receipt Date: 20071003
  Transmission Date: 20080405
  Serious: Yes (Other)
  Sender: FDA-Public Use
  Company Number: US-PFIZER INC-2007084612

PATIENT
  Sex: Female

DRUGS (3)
  1. CHANTIX [Suspect]
     Indication: SMOKING CESSATION THERAPY
     Route: 048
  2. MONTELUKAST SODIUM [Concomitant]
  3. ALBUTEROL [Concomitant]
     Route: 055

REACTIONS (4)
  - ANGER [None]
  - MEMORY IMPAIRMENT [None]
  - MOOD ALTERED [None]
  - PSYCHOTIC DISORDER [None]
